FAERS Safety Report 7418304-7 (Version None)
Quarter: 2011Q2

REPORT INFORMATION
  Report Type: 
  Country: None (occurrence: None)
  Receive Date: 20110415
  Receipt Date: 20110407
  Transmission Date: 20111010
  Serious: Yes (Hospitalization)
  Sender: FDA-Public Use
  Company Number: CH-MPIJNJ-2011-01494

PATIENT

DRUGS (1)
  1. VELCADE [Suspect]
     Indication: MULTIPLE MYELOMA
     Dosage: 2 MG/M2, UNK
     Route: 042
     Dates: start: 20110118, end: 20110308

REACTIONS (1)
  - MONONEUROPATHY MULTIPLEX [None]
